FAERS Safety Report 7563125-8 (Version None)
Quarter: 2011Q2

REPORT INFORMATION
  Report Type: 
  Country: None (occurrence: None)
  Receive Date: 20110621
  Receipt Date: 20110621
  Transmission Date: 20111010
  Serious: Yes (Hospitalization)
  Sender: FDA-Public Use
  Company Number: None

PATIENT
  Age: 46 Year
  Sex: Male
  Weight: 139 kg

DRUGS (1)
  1. METHOCARBAMOL [Suspect]
     Indication: BACK PAIN
     Dosage: 1500 MG TID PO
     Route: 048
     Dates: start: 20040623, end: 20110614

REACTIONS (2)
  - LETHARGY [None]
  - HYPOTENSION [None]
